FAERS Safety Report 8340045-2 (Version None)
Quarter: 2012Q2

REPORT INFORMATION
  Report Type: 
  Country: None (occurrence: None)
  Receive Date: 20120507
  Receipt Date: 20090317
  Transmission Date: 20120825
  Serious: No
  Sender: FDA-Public Use
  Company Number: US-TEVA-2009001976

PATIENT
  Sex: Male

DRUGS (1)
  1. TREANDA [Suspect]
     Dosage: 200 MILLIGRAM;
     Route: 042
     Dates: start: 20090317

REACTIONS (1)
  - EXTRAVASATION [None]
